FAERS Safety Report 20223380 (Version 2)
Quarter: 2021Q4

REPORT INFORMATION
  Report Type: Spontaneous
  Country: RU (occurrence: RU)
  Receive Date: 20211223
  Receipt Date: 20211230
  Transmission Date: 20220304
  Serious: Yes (Other)
  Sender: FDA-Public Use
  Company Number: ALC2021RU006664

PATIENT

DRUGS (5)
  1. CARBOMER [Suspect]
     Active Substance: CARBOMER
     Indication: Product used for unknown indication
     Route: 047
  2. HYALURONATE SODIUM [Suspect]
     Active Substance: HYALURONATE SODIUM
     Indication: Product used for unknown indication
     Route: 065
  3. CHONDROITIN SULFATE (BOVINE)\HYALURONATE SODIUM [Suspect]
     Active Substance: CHONDROITIN SULFATE (BOVINE)\HYALURONATE SODIUM
     Indication: Product used for unknown indication
     Route: 065
  4. CHONDROITIN SULFATE SODIUM NOS\HYALURONATE SODIUM [Suspect]
     Active Substance: CHONDROITIN SULFATE SODIUM NOS\HYALURONATE SODIUM
     Indication: Product used for unknown indication
     Route: 065
  5. CHONDROITIN SULFATE SODIUM NOS\HYALURONATE SODIUM [Suspect]
     Active Substance: CHONDROITIN SULFATE SODIUM NOS\HYALURONATE SODIUM
     Indication: Product used for unknown indication
     Route: 065

REACTIONS (5)
  - Toxic anterior segment syndrome [Unknown]
  - Aqueous fibrin [Unknown]
  - Eye inflammation [Unknown]
  - Anterior chamber fibrin [Unknown]
  - Visual acuity reduced [Unknown]
